FAERS Safety Report 7692674-7 (Version None)
Quarter: 2011Q3

REPORT INFORMATION
  Report Type: 
  Country: None (occurrence: None)
  Receive Date: 20110819
  Receipt Date: 20110811
  Transmission Date: 20111222
  Serious: No
  Sender: FDA-Public Use
  Company Number: US-PFIZER INC-2011185292

PATIENT
  Sex: Female
  Weight: 72.562 kg

DRUGS (5)
  1. AMLODIPINE BESILATE [Concomitant]
     Indication: HYPERTENSION
     Dosage: 5 MG, 1X/DAY
     Dates: start: 20090101
  2. MULTI-VITAMINS [Concomitant]
     Indication: VITAMIN SUPPLEMENTATION
     Dosage: UNK
  3. WARFARIN SODIUM [Concomitant]
     Indication: ANTIPHOSPHOLIPID SYNDROME
     Dosage: 5 MG, 1X/DAY
  4. TOPROL-XL [Concomitant]
     Indication: EXTRASYSTOLES
     Dosage: 20 MG, 1X/DAY
  5. DETROL LA [Suspect]
     Indication: URINARY INCONTINENCE
     Dosage: UNK MG, 1X/DAY
     Dates: start: 20060101

REACTIONS (1)
  - DRUG INEFFECTIVE [None]
